FAERS Safety Report 5803279-4 (Version None)
Quarter: 2008Q3

REPORT INFORMATION
  Report Type: 
  Country: None (occurrence: None)
  Receive Date: 20080708
  Receipt Date: 20080707
  Transmission Date: 20090109
  Serious: Yes (Life-Threatening)
  Sender: FDA-Public Use
  Company Number: A0730017A

PATIENT
  Age: 46 Year
  Sex: Male

DRUGS (2)
  1. TRIZIVIR [Suspect]
     Indication: RETROVIRAL INFECTION
     Dosage: 300MG TWICE PER DAY
     Dates: start: 20030927
  2. LOPINAVIR AND RITONAVIR [Suspect]
     Indication: RETROVIRAL INFECTION
     Dosage: 4CAP PER DAY
     Route: 048
     Dates: start: 20030927

REACTIONS (2)
  - ACUTE CORONARY SYNDROME [None]
  - ARTERIOSCLEROSIS CORONARY ARTERY [None]
